FAERS Safety Report 4442548-X (Version None)
Quarter: 2004Q3

REPORT INFORMATION
  Report Type: 
  Country: None (occurrence: None)
  Receive Date: 20040903
  Receipt Date: 20040806
  Transmission Date: 20050211
  Serious: Yes (Other)
  Sender: FDA-Public Use
  Company Number: 2004UW14581

PATIENT
  Age: 73 Year
  Sex: Female
  Weight: 69.8539 kg

DRUGS (9)
  1. CRESTOR [Suspect]
     Indication: HYPERCHOLESTEROLAEMIA
     Dosage: 10 MG QD PO
     Route: 048
  2. ASPIRIN [Concomitant]
  3. PROTONIX [Concomitant]
  4. METFORMIN HCL [Concomitant]
  5. GLUCOSAMINE [Concomitant]
  6. CHONDROITIN SULFATE [Concomitant]
  7. TRIAM [Concomitant]
  8. QUININE SULFATE [Concomitant]
  9. VALIUM [Concomitant]

REACTIONS (10)
  - ABDOMINAL PAIN [None]
  - ARTHRALGIA [None]
  - CONSTIPATION [None]
  - DIFFICULTY IN WALKING [None]
  - DYSPEPSIA [None]
  - FEELING ABNORMAL [None]
  - FEELING COLD [None]
  - NAUSEA [None]
  - PYREXIA [None]
  - VOMITING [None]
